FAERS Safety Report 6843520-2 (Version None)
Quarter: 2010Q3

REPORT INFORMATION
  Report Type: 
  Country: None (occurrence: None)
  Receive Date: 20100715
  Receipt Date: 20100709
  Transmission Date: 20110219
  Serious: Yes (Other)
  Sender: FDA-Public Use
  Company Number: JP-BAYER-201013479BYL

PATIENT
  Age: 55 Year
  Sex: Male
  Weight: 59 kg

DRUGS (7)
  1. NEXAVAR [Suspect]
     Indication: RENAL CELL CARCINOMA
     Dosage: UNIT DOSE: 200 MG
     Route: 048
     Dates: start: 20090723
  2. OXYCONTIN [Concomitant]
     Route: 048
     Dates: start: 20090408
  3. MAGLAX [Concomitant]
     Route: 048
     Dates: start: 20090408
  4. CYTOTEC [Concomitant]
     Route: 048
     Dates: start: 20090408
  5. VOLTAREN [Concomitant]
     Route: 048
     Dates: start: 20090408
  6. GASTER D [Concomitant]
     Route: 048
     Dates: start: 20090408
  7. MEDICON [Concomitant]
     Route: 048
     Dates: start: 20091105

REACTIONS (7)
  - ALOPECIA [None]
  - COUGH [None]
  - DIARRHOEA [None]
  - HYPERTENSION [None]
  - NASOPHARYNGITIS [None]
  - PALMAR-PLANTAR ERYTHRODYSAESTHESIA SYNDROME [None]
  - PEPTIC ULCER [None]
